FAERS Safety Report 17844105 (Version 6)
Quarter: 2021Q4

REPORT INFORMATION
  Report Type: Report from Study
  Country: US (occurrence: US)
  Receive Date: 20200601
  Receipt Date: 20211201
  Transmission Date: 20220303
  Serious: Yes (Hospitalization)
  Sender: FDA-Public Use
  Company Number: US-PCYC-2018PHC15298

PATIENT
  Sex: Female

DRUGS (9)
  1. IMBRUVICA [Suspect]
     Active Substance: IBRUTINIB
     Indication: Chronic lymphocytic leukaemia
     Route: 048
     Dates: start: 20180508
  2. IMBRUVICA [Suspect]
     Active Substance: IBRUTINIB
     Indication: Chronic lymphocytic leukaemia
     Route: 048
     Dates: start: 20180502
  3. IMBRUVICA [Suspect]
     Active Substance: IBRUTINIB
     Route: 048
  4. IMBRUVICA [Suspect]
     Active Substance: IBRUTINIB
     Route: 048
  5. IMBRUVICA [Suspect]
     Active Substance: IBRUTINIB
     Route: 048
  6. IMBRUVICA [Suspect]
     Active Substance: IBRUTINIB
     Route: 048
  7. IMBRUVICA [Suspect]
     Active Substance: IBRUTINIB
     Route: 048
  8. IMBRUVICA [Suspect]
     Active Substance: IBRUTINIB
     Route: 048
     Dates: start: 201805
  9. IMBRUVICA [Suspect]
     Active Substance: IBRUTINIB
     Indication: Product used for unknown indication
     Route: 048
     Dates: start: 20170826

REACTIONS (20)
  - Blood pressure increased [Recovering/Resolving]
  - Stress [Unknown]
  - Depressed mood [Recovered/Resolved]
  - Skin atrophy [Not Recovered/Not Resolved]
  - Laboratory test abnormal [Not Recovered/Not Resolved]
  - Skin discolouration [Unknown]
  - Eye haemorrhage [Unknown]
  - Swelling [Unknown]
  - Fatigue [Unknown]
  - White blood cell count decreased [Recovering/Resolving]
  - Anxiety [Not Recovered/Not Resolved]
  - Dyspepsia [Unknown]
  - Gastrooesophageal reflux disease [Unknown]
  - Blood uric acid increased [Unknown]
  - Asthenia [Unknown]
  - Increased tendency to bruise [Unknown]
  - Haemorrhage subcutaneous [Unknown]
  - Hypersensitivity [Unknown]
  - Contusion [Not Recovered/Not Resolved]
  - Fibromyalgia [Unknown]

NARRATIVE: CASE EVENT DATE: 20170101
